FAERS Safety Report 4634936-3 (Version None)
Quarter: 2005Q2

REPORT INFORMATION
  Report Type: 
  Country: None (occurrence: None)
  Receive Date: 20050414
  Receipt Date: 20030211
  Transmission Date: 20051028
  Serious: Yes (Other)
  Sender: FDA-Public Use
  Company Number: PHFR2003GB05102

PATIENT

DRUGS (1)
  1. EXELON [Suspect]

REACTIONS (2)
  - CIRCULATORY COLLAPSE [None]
  - SOMNOLENCE [None]
